FAERS Safety Report 25149387 (Version 1)
Quarter: 2025Q2

REPORT INFORMATION
  Report Type: Spontaneous
  Country: FR (occurrence: FR)
  Receive Date: 20250402
  Receipt Date: 20250402
  Transmission Date: 20250716
  Serious: Yes (Life-Threatening, Other)
  Sender: AUROBINDO
  Company Number: FR-AFSSAPS-MA2025000230

PATIENT
  Age: 60 Year
  Sex: Male

DRUGS (5)
  1. LIDOCAINE [Suspect]
     Active Substance: LIDOCAINE
     Indication: Hip arthroplasty
     Route: 042
     Dates: start: 20250219
  2. KETAMINE [Suspect]
     Active Substance: KETAMINE
     Indication: Hip arthroplasty
     Route: 042
     Dates: start: 20250219
  3. ATRACURIUM [Suspect]
     Active Substance: ATRACURIUM
     Indication: Hip arthroplasty
     Route: 042
     Dates: start: 20250219
  4. SUFENTANIL [Suspect]
     Active Substance: SUFENTANIL
     Indication: Hip arthroplasty
     Route: 042
     Dates: start: 20250219
  5. PROPOFOL [Suspect]
     Active Substance: PROPOFOL
     Indication: Hip arthroplasty
     Route: 042
     Dates: start: 20250219

REACTIONS (1)
  - Anaphylactic shock [Recovered/Resolved]

NARRATIVE: CASE EVENT DATE: 20250219
